FAERS Safety Report 5158496-6 (Version None)
Quarter: 2006Q4

REPORT INFORMATION
  Report Type: 
  Country: None (occurrence: None)
  Receive Date: 20061117
  Receipt Date: 20061107
  Transmission Date: 20070319
  Serious: Yes (Hospitalization)
  Sender: FDA-Public Use
  Company Number: DEWYE280319OCT06

PATIENT
  Age: 32 Year
  Sex: Female

DRUGS (5)
  1. LORAZEPAM [Suspect]
     Dosage: 20 TABLETS (OVERDOSE AMOUNT 10 MG)
     Route: 048
     Dates: start: 20061018, end: 20061018
  2. CARBAMAZEPINE [Suspect]
     Dosage: 80 TABLETS (OVERDOSE AMOUNT 16000 MG)
     Route: 048
     Dates: start: 20061018, end: 20061018
  3. SEROQUEL [Suspect]
     Dosage: 30 TABLETS (OVERDOSE AMOUNT 3000 MG)
     Route: 048
     Dates: start: 20061018, end: 20061018
  4. VENLAFAXINE HCL [Suspect]
     Dosage: 10 CAPSULES (OVERDOSE AMOUNT 1500 MG)
     Route: 048
     Dates: start: 20061018, end: 20061018
  5. ZYPREXA [Suspect]
     Dosage: OVERDOSE AMOUNT UNKNOWN
     Route: 048
     Dates: start: 20061018, end: 20061018

REACTIONS (5)
  - FATIGUE [None]
  - GASTROINTESTINAL MOTILITY DISORDER [None]
  - INTENTIONAL OVERDOSE [None]
  - SUICIDE ATTEMPT [None]
  - TACHYCARDIA [None]
